FAERS Safety Report 7065586-X (Version None)
Quarter: 2010Q4

REPORT INFORMATION
  Report Type: 
  Country: None (occurrence: None)
  Receive Date: 20101027
  Receipt Date: 20101018
  Transmission Date: 20110411
  Serious: Yes (Other)
  Sender: FDA-Public Use
  Company Number: NL-TEVA-252204ISR

PATIENT
  Age: 28 Year
  Sex: Male

DRUGS (4)
  1. AMITRIPTYLINE HCL [Suspect]
     Indication: NEURALGIA
  2. METOPROLOL [Suspect]
     Indication: SINUS TACHYCARDIA
  3. VANCOMYCIN [Concomitant]
  4. FLUCLOXACILLIN [Concomitant]

REACTIONS (7)
  - ACUTE LUNG INJURY [None]
  - DIARRHOEA [None]
  - DRUG RASH WITH EOSINOPHILIA AND SYSTEMIC SYMPTOMS [None]
  - EOSINOPHILIA [None]
  - HEPATITIS [None]
  - RENAL FAILURE [None]
  - SHOCK [None]
